FAERS Safety Report 10431242 (Version 1)
Quarter: 2014Q3

REPORT INFORMATION
  Report Type: Spontaneous
  Country: US (occurrence: None)
  Receive Date: 20140815
  Receipt Date: 20140815
  Transmission Date: 20150326
  Serious: Yes (Hospitalization, Other)
  Sender: FDA-Public Use
  Company Number: US-2014-10168

PATIENT
  Age: 28 Year
  Sex: Male
  Weight: 72.6 kg

DRUGS (8)
  1. HALOPERIDOL LACTATE (HALOPERIDOL LACTATE) [Concomitant]
  2. RISPERIDONE. [Concomitant]
     Active Substance: RISPERIDONE
  3. ABILIFY MAINTENA [Suspect]
     Active Substance: ARIPIPRAZOLE
     Indication: SCHIZOPHRENIA
     Dosage: (DEPOT)
     Route: 030
     Dates: start: 20140106
  4. COGENTIN (BENZATROOINE MESILATE) [Concomitant]
  5. GEODON (ZIPRASIDONE MESILATE) [Concomitant]
  6. PROZAC [Concomitant]
     Active Substance: FLUOXETINE HYDROCHLORIDE
  7. CHLORPROMAZINE HYDROCHLORIDE (CHLORPROMAZINE HYDROCHLORIDE) [Concomitant]
  8. DIVAIPROEX SODIUM (VALPROATE SEMISODIUM) [Concomitant]

REACTIONS (10)
  - Dizziness [None]
  - Parkinsonian gait [None]
  - Delusion [None]
  - Drug ineffective [None]
  - Disturbance in attention [None]
  - Anxiety [None]
  - Psychotic disorder [None]
  - Muscle fatigue [None]
  - Extrapyramidal disorder [None]
  - Fatigue [None]

NARRATIVE: CASE EVENT DATE: 20140122
